FAERS Safety Report 4650152-3 (Version None)
Quarter: 2005Q2

REPORT INFORMATION
  Report Type: 
  Country: None (occurrence: None)
  Receive Date: 20050502
  Receipt Date: 20041019
  Transmission Date: 20051028
  Serious: Yes (Other)
  Sender: FDA-Public Use
  Company Number: DE-BRISTOL-MYERS SQUIBB COMPANY-12744777

PATIENT
  Age: 35 Year
  Sex: Female

DRUGS (2)
  1. ABILIFY [Suspect]
     Indication: PSYCHOTIC DISORDER
     Route: 048
     Dates: start: 20040927, end: 20041001
  2. ZIPRASIDONE [Concomitant]
     Indication: PSYCHOTIC DISORDER
     Dosage: 40 MG BID; THEN SCHEDULED FOR REDUCTION ON 05-OCT-04.
     Route: 048
     Dates: start: 20040820

REACTIONS (4)
  - DIZZINESS [None]
  - HEADACHE [None]
  - LOSS OF CONSCIOUSNESS [None]
  - SYNCOPE [None]
